FAERS Safety Report 23942217 (Version 1)
Quarter: 2024Q2

REPORT INFORMATION
  Report Type: Spontaneous
  Country: US (occurrence: None)
  Receive Date: 20240604
  Receipt Date: 20240604
  Transmission Date: 20240716
  Serious: No
  Sender: FDA-Public Use
  Company Number: None

PATIENT
  Age: 12 Year
  Sex: Male
  Weight: 22 kg

DRUGS (1)
  1. NORDITROPIN [Suspect]
     Active Substance: SOMATROPIN
     Indication: Hypopituitarism
     Dosage: OTHER FREQUENCY : 6 DAYS A WEEK;?
     Route: 058

REACTIONS (2)
  - Flatulence [None]
  - Eructation [None]

NARRATIVE: CASE EVENT DATE: 20240603
